FAERS Safety Report 6279473-8 (Version None)
Quarter: 2009Q3

REPORT INFORMATION
  Report Type: 
  Country: None (occurrence: None)
  Receive Date: 20090723
  Receipt Date: 20071030
  Transmission Date: 20100115
  Serious: Yes (Hospitalization, Other)
  Sender: FDA-Public Use
  Company Number: US-ASTRAZENECA-2007UW02054

PATIENT
  Age: 14772 Day
  Sex: Male
  Weight: 96.2 kg

DRUGS (19)
  1. SEROQUEL [Suspect]
     Indication: BIPOLAR DISORDER
     Dosage: 100-300 MG BD
     Route: 048
     Dates: start: 20001102
  2. SEROQUEL [Suspect]
     Indication: POST-TRAUMATIC STRESS DISORDER
     Dosage: 100-300 MG BD
     Route: 048
     Dates: start: 20001102
  3. SEROQUEL [Suspect]
     Route: 048
     Dates: start: 20001101
  4. SEROQUEL [Suspect]
     Route: 048
     Dates: start: 20001101
  5. SEROQUEL [Suspect]
     Route: 048
     Dates: start: 20020101
  6. SEROQUEL [Suspect]
     Route: 048
     Dates: start: 20020101
  7. ZYPREXA/SYMBYAX (OLANZAPINE) [Concomitant]
     Dates: start: 20030601, end: 20040701
  8. DEPAKOTE [Concomitant]
     Dates: start: 20001101, end: 20040701
  9. LITHIUM CARBONATE [Concomitant]
     Dates: start: 20010101, end: 20070801
  10. VOLTAREN [Concomitant]
     Dates: start: 20031201
  11. PROZAC [Concomitant]
     Dates: start: 20001101, end: 20010701
  12. LORAZEPAM [Concomitant]
     Dosage: 0.5-1 MG
     Route: 048
  13. REMERON [Concomitant]
     Route: 048
  14. ALPRAZOLAM [Concomitant]
     Dosage: 0.5-1 MG
     Route: 048
  15. PROCHLORPERAZINE [Concomitant]
  16. VALIUM [Concomitant]
  17. GLYBURIDE [Concomitant]
     Dosage: 2.5-5 MG
     Route: 048
  18. AMBIEN [Concomitant]
     Dosage: 5-12.5 MG
     Route: 048
  19. LOPRESSOR [Concomitant]

REACTIONS (16)
  - ALCOHOLIC LIVER DISEASE [None]
  - ARTHRALGIA [None]
  - BACK PAIN [None]
  - CHEST DISCOMFORT [None]
  - CHEST PAIN [None]
  - DIABETES MELLITUS [None]
  - DYSPNOEA [None]
  - EROSIVE OESOPHAGITIS [None]
  - GASTRITIS [None]
  - HEPATOMEGALY [None]
  - ILL-DEFINED DISORDER [None]
  - LIVER FUNCTION TEST ABNORMAL [None]
  - LUMBAR SPINAL STENOSIS [None]
  - MYOSITIS [None]
  - PAIN [None]
  - SUICIDE ATTEMPT [None]
